FAERS Safety Report 13549174 (Version 1)
Quarter: 2017Q2

REPORT INFORMATION
  Report Type: Other
  Country: TR (occurrence: TR)
  Receive Date: 20170516
  Receipt Date: 20170516
  Transmission Date: 20170830
  Serious: Yes (Other)
  Sender: FDA-Public Use
  Company Number: TR-DEXPHARM-20170688

PATIENT
  Age: 52 Year
  Sex: Female

DRUGS (1)
  1. CHLORHEXIDINE 0.02% DROPS [Suspect]
     Active Substance: CHLORHEXIDINE
     Indication: CORNEAL INFECTION
     Route: 061

REACTIONS (2)
  - Vital dye staining cornea present [Unknown]
  - Ulcerative keratitis [Recovered/Resolved]
